FAERS Safety Report 7190638-3 (Version None)
Quarter: 2010Q4

REPORT INFORMATION
  Report Type: 
  Country: None (occurrence: None)
  Receive Date: 20101221
  Receipt Date: 20101221
  Transmission Date: 20110411
  Serious: No
  Sender: FDA-Public Use
  Company Number: None

PATIENT
  Age: 78 Year
  Sex: Male
  Weight: 81.6475 kg

DRUGS (1)
  1. TRAMADOL HCL [Suspect]
     Indication: BONE PAIN
     Dosage: 2 3 TIME DAILY AS NEEDED
     Dates: start: 20101216, end: 20101218

REACTIONS (1)
  - ABDOMINAL PAIN UPPER [None]
